FAERS Safety Report 23585193 (Version 6)
Quarter: 2024Q4

REPORT INFORMATION
  Report Type: Spontaneous
  Country: CA (occurrence: CA)
  Receive Date: 20240301
  Receipt Date: 20241215
  Transmission Date: 20250115
  Serious: Yes (Hospitalization, Other)
  Sender: CELLTRION
  Company Number: CA-CELLTRION INC.-2024CA005016

PATIENT

DRUGS (13)
  1. INFLECTRA [Suspect]
     Active Substance: INFLIXIMAB-DYYB
     Indication: Psoriasis
     Dosage: 600 MG, 0, 2, 6, THEN EVERY 8 WEEKS
     Route: 042
     Dates: start: 20200915, end: 20201027
  2. INFLECTRA [Suspect]
     Active Substance: INFLIXIMAB-DYYB
     Dosage: 7 MG/KG, EVERY 8 WEEKS
     Route: 042
     Dates: start: 20201222, end: 20210609
  3. INFLECTRA [Suspect]
     Active Substance: INFLIXIMAB-DYYB
     Dosage: 1200 MG, EVERY 4 WEEKS
     Route: 042
     Dates: start: 20210707
  4. INFLECTRA [Suspect]
     Active Substance: INFLIXIMAB-DYYB
     Dosage: 1200 MG, EVERY 4 WEEKS
     Route: 042
     Dates: start: 20240124
  5. INFLECTRA [Suspect]
     Active Substance: INFLIXIMAB-DYYB
     Dosage: 1200 MG, EVERY 4 WEEKS
     Route: 042
     Dates: start: 20240221
  6. INFLECTRA [Suspect]
     Active Substance: INFLIXIMAB-DYYB
     Dosage: 1200 MG, EVERY 4 WEEKS
     Route: 042
     Dates: start: 20240418, end: 20240418
  7. INFLECTRA [Suspect]
     Active Substance: INFLIXIMAB-DYYB
     Dosage: 1200 MG, EVERY 4 WEEKS
     Route: 042
     Dates: start: 20240710
  8. INFLECTRA [Suspect]
     Active Substance: INFLIXIMAB-DYYB
     Dosage: 1200 MG, EVERY 4 WEEKS
     Route: 042
     Dates: start: 20240806
  9. INFLECTRA [Suspect]
     Active Substance: INFLIXIMAB-DYYB
     Dosage: 1200 MG, EVERY 4 WEEKS
     Route: 042
     Dates: start: 20241002
  10. INFLECTRA [Suspect]
     Active Substance: INFLIXIMAB-DYYB
     Dosage: 1200 MG, AFTER 9 WEEKS (PRESCRIBED EVERY 4 WEEKS)
     Route: 042
     Dates: start: 20241204
  11. LOSEC [Concomitant]
     Active Substance: OMEPRAZOLE
     Dosage: 20 MG, STARTED APPROXIMATELY IN 2018/2019. FREQUENCY NOT PROVIDED.
     Route: 065
  12. METHOTREXATE [Concomitant]
     Active Substance: METHOTREXATE
     Indication: Psoriasis
     Dosage: UNK
  13. SULFASALAZINE [Concomitant]
     Active Substance: SULFASALAZINE
     Dosage: 150 MG, 2X/DAY
     Route: 048
     Dates: start: 2017

REACTIONS (7)
  - Neck injury [Unknown]
  - Blood pressure increased [Recovering/Resolving]
  - Road traffic accident [Unknown]
  - Anxiety [Recovering/Resolving]
  - Nightmare [Recovering/Resolving]
  - Infusion site pain [Unknown]
  - Fear [Unknown]

NARRATIVE: CASE EVENT DATE: 20240101
